FAERS Safety Report 7058036-0 (Version None)
Quarter: 2010Q4

REPORT INFORMATION
  Report Type: 
  Country: None (occurrence: None)
  Receive Date: 20101022
  Receipt Date: 20101014
  Transmission Date: 20110411
  Serious: No
  Sender: FDA-Public Use
  Company Number: NO-JNJFOC-20101004014

PATIENT
  Age: 48 Year
  Sex: Male

DRUGS (5)
  1. DURAGESIC-100 [Suspect]
     Indication: PAIN MANAGEMENT
     Route: 065
  2. DURAGESIC-100 [Suspect]
     Route: 065
  3. DURAGESIC-100 [Suspect]
     Route: 065
  4. ACETAMINOPHEN W/ CODEINE [Concomitant]
     Dosage: PARACETAMOL 400 MG/KODEIN 30 MG (5 TABLETS/DAY)
     Route: 065
  5. VIVAL [Concomitant]
     Dosage: PARACETAMOL 400 MG/KODEIN 30 MG (5 TABLETS/DAY)
     Route: 065

REACTIONS (4)
  - DRUG INEFFECTIVE [None]
  - FEELING ABNORMAL [None]
  - FEELING DRUNK [None]
  - INAPPROPRIATE SCHEDULE OF DRUG ADMINISTRATION [None]
